FAERS Safety Report 9548904 (Version 1)
Quarter: 2013Q3

REPORT INFORMATION
  Report Type: Spontaneous
  Country: KR (occurrence: KR)
  Receive Date: 20130924
  Receipt Date: 20130924
  Transmission Date: 20140515
  Serious: Yes (Other)
  Sender: FDA-Public Use
  Company Number: KR-TEVA-431628ISR

PATIENT
  Sex: Female

DRUGS (3)
  1. CARBOPLATIN [Suspect]
     Indication: HEPATOCELLULAR CARCINOMA
     Dosage: 3 CYCLES
     Route: 065
  2. FLUOROURACIL [Suspect]
     Indication: HEPATOCELLULAR CARCINOMA
     Dosage: 3 CYCLES
     Route: 065
  3. SORAFENIB [Suspect]
     Indication: HEPATOCELLULAR CARCINOMA
     Dosage: 400 MILLIGRAM DAILY;
     Route: 065

REACTIONS (2)
  - Thrombocytopenia [Unknown]
  - Small intestinal haemorrhage [Recovered/Resolved]
